FAERS Safety Report 23392564 (Version 4)
Quarter: 2024Q2

REPORT INFORMATION
  Report Type: Spontaneous
  Country: US (occurrence: US)
  Receive Date: 20240111
  Receipt Date: 20240405
  Transmission Date: 20240716
  Serious: Yes (Disabling, Other)
  Sender: FDA-Public Use
  Company Number: US-HORIZON THERAPEUTICS-HZN-2023-008921

PATIENT

DRUGS (21)
  1. TEPEZZA [Suspect]
     Active Substance: TEPROTUMUMAB-TRBW
     Indication: Endocrine ophthalmopathy
     Dosage: 1180 MG, FIRST INFUSION
     Route: 042
     Dates: start: 20220718, end: 202212
  2. TEPEZZA [Suspect]
     Active Substance: TEPROTUMUMAB-TRBW
     Dosage: 1180 MG, FIRST INFUSION
     Route: 042
     Dates: start: 20220718, end: 202212
  3. TEPEZZA [Suspect]
     Active Substance: TEPROTUMUMAB-TRBW
     Dosage: 2320 MG, SECOND INFUSION
     Route: 042
     Dates: start: 20220808
  4. TEPEZZA [Suspect]
     Active Substance: TEPROTUMUMAB-TRBW
     Dosage: 2260 MG, THIRD INFUSION
     Route: 042
     Dates: start: 20220829, end: 202212
  5. TEPEZZA [Suspect]
     Active Substance: TEPROTUMUMAB-TRBW
     Dosage: 2340 MG, FOURTH INFUSION
     Route: 042
     Dates: start: 20220919, end: 202212
  6. TEPEZZA [Suspect]
     Active Substance: TEPROTUMUMAB-TRBW
     Dosage: 2280 MG, FIFTH INFUSION
     Route: 042
     Dates: start: 20221010
  7. TEPEZZA [Suspect]
     Active Substance: TEPROTUMUMAB-TRBW
     Dosage: 2260 MG, SIXTH INFUSION
     Route: 042
     Dates: start: 20221031
  8. TEPEZZA [Suspect]
     Active Substance: TEPROTUMUMAB-TRBW
     Dosage: 2270 MG, SEVENTH INFUSION
     Route: 042
     Dates: start: 20221121
  9. TEPEZZA [Suspect]
     Active Substance: TEPROTUMUMAB-TRBW
     Dosage: 2270 MG, SEVENTH INFUSION
     Route: 042
     Dates: start: 20221121
  10. TEPEZZA [Suspect]
     Active Substance: TEPROTUMUMAB-TRBW
     Dosage: 2270 MG, EIGHTH INFUSION
     Route: 042
     Dates: start: 20221212
  11. ALEVE [Concomitant]
     Active Substance: NAPROXEN SODIUM
     Dosage: UNK
     Route: 048
     Dates: start: 20220718
  12. CAL CITRATE PLUS VITAMIN D [Concomitant]
     Dosage: 315 MG- 5 MCG
     Dates: start: 20220718
  13. FLUOXETINE [Concomitant]
     Active Substance: FLUOXETINE HYDROCHLORIDE
  14. FISH OIL [Concomitant]
     Active Substance: FISH OIL
  15. VITAMINS [Concomitant]
     Active Substance: VITAMINS
     Dosage: UNK
  16. PANTOPRAZOLE [Concomitant]
     Active Substance: PANTOPRAZOLE
     Dosage: UNK
     Route: 048
     Dates: start: 20220718
  17. ROSUVASTATIN [Concomitant]
     Active Substance: ROSUVASTATIN
  18. TORSEMIDE [Concomitant]
     Active Substance: TORSEMIDE
     Dosage: UNK
     Route: 048
     Dates: start: 20220718
  19. TYLENOL [Concomitant]
     Active Substance: ACETAMINOPHEN
     Dosage: UNK
     Route: 048
     Dates: start: 20220718
  20. SODIUM CHLORIDE [Concomitant]
     Active Substance: SODIUM CHLORIDE
  21. INFLUENZA VIRUS VACCINE [Concomitant]
     Active Substance: INFLUENZA VIRUS VACCINE
     Dosage: UNK
     Dates: start: 20221101

REACTIONS (17)
  - Deafness [Not Recovered/Not Resolved]
  - Physical disability [Unknown]
  - Disability [Unknown]
  - Tinnitus [Not Recovered/Not Resolved]
  - Alopecia [Unknown]
  - Nail disorder [Unknown]
  - Impaired quality of life [Unknown]
  - Anxiety [Unknown]
  - Discomfort [Unknown]
  - Pain [Unknown]
  - Economic problem [Unknown]
  - Concomitant disease aggravated [Unknown]
  - Injury [Unknown]
  - Emotional distress [Unknown]
  - Fatigue [Unknown]
  - Muscle spasms [Unknown]
  - Product quality issue [Unknown]
